FAERS Safety Report 4977706-9 (Version None)
Quarter: 2006Q2

REPORT INFORMATION
  Report Type: 
  Country: None (occurrence: None)
  Receive Date: 20060414
  Receipt Date: 20060330
  Transmission Date: 20061013
  Serious: Yes (Hospitalization, Other)
  Sender: FDA-Public Use
  Company Number: FR-2006-007424

PATIENT
  Age: 60 Year
  Sex: Female

DRUGS (2)
  1. BETAFERON (INTERFERON BETA - 1B) INJECTION, 250UG [Suspect]
     Indication: MULTIPLE SCLEROSIS
     Dosage: 250 UG/DAY, EVERY 2D, SUBCUTANEOUS
     Route: 058
     Dates: start: 20000127
  2. CELEBREX [Concomitant]

REACTIONS (3)
  - BREAST CANCER METASTATIC [None]
  - DIABETES MELLITUS [None]
  - METASTASES TO BONE [None]
